FAERS Safety Report 5519520-1 (Version None)
Quarter: 2007Q4

REPORT INFORMATION
  Report Type: 
  Country: None (occurrence: None)
  Receive Date: 20071116
  Receipt Date: 20071115
  Transmission Date: 20080405
  Serious: Yes (Other)
  Sender: FDA-Public Use
  Company Number: A0693606A

PATIENT
  Age: 20 Year
  Sex: Female

DRUGS (2)
  1. PAXIL [Suspect]
     Indication: BIPOLAR I DISORDER
     Dosage: 20MG THREE TIMES PER DAY
     Route: 048
     Dates: start: 20070701
  2. INDERAL [Suspect]
     Route: 048

REACTIONS (9)
  - ADVERSE DRUG REACTION [None]
  - DEPRESSION [None]
  - DRUG INEFFECTIVE [None]
  - HALLUCINATION [None]
  - MYDRIASIS [None]
  - PHARMACEUTICAL PRODUCT COMPLAINT [None]
  - PSYCHOMOTOR HYPERACTIVITY [None]
  - SELF-INJURIOUS IDEATION [None]
  - SOMNOLENCE [None]
